FAERS Safety Report 12962791 (Version 1)
Quarter: 2016Q4

REPORT INFORMATION
  Report Type: Spontaneous
  Country: DE (occurrence: DE)
  Receive Date: 20161121
  Receipt Date: 20161121
  Transmission Date: 20170207
  Serious: Yes (Hospitalization, Other)
  Sender: FDA-Public Use
  Company Number: DE-MYLANLABS-2016M1049764

PATIENT

DRUGS (12)
  1. LEPONEX [Suspect]
     Active Substance: CLOZAPINE
     Dosage: 100 MG, QD
     Route: 048
  2. LEPONEX [Suspect]
     Active Substance: CLOZAPINE
     Dosage: 150 MG, QD
     Route: 048
     Dates: start: 201106
  3. LEPONEX [Suspect]
     Active Substance: CLOZAPINE
     Dosage: UNK
     Route: 048
     Dates: start: 201605, end: 201605
  4. INVEGA [Concomitant]
     Active Substance: PALIPERIDONE
     Indication: PRODUCT USED FOR UNKNOWN INDICATION
     Dosage: UNK
     Dates: start: 2011
  5. SEROQUEL [Concomitant]
     Active Substance: QUETIAPINE FUMARATE
     Indication: PRODUCT USED FOR UNKNOWN INDICATION
     Dosage: UNK
  6. LEPONEX [Suspect]
     Active Substance: CLOZAPINE
     Indication: PSYCHOTIC DISORDER
     Dosage: 225 MG, QD
     Route: 048
     Dates: start: 1997
  7. LEPONEX [Suspect]
     Active Substance: CLOZAPINE
     Dosage: 225 MG, QD
     Route: 048
     Dates: start: 2016
  8. DIAZEPAM. [Concomitant]
     Active Substance: DIAZEPAM
     Dosage: 1 DF, HS
  9. LEPONEX [Suspect]
     Active Substance: CLOZAPINE
     Dosage: 300 MG, QD
     Route: 048
     Dates: start: 201505
  10. LEPONEX [Suspect]
     Active Substance: CLOZAPINE
     Dosage: 125 MG, QD
     Route: 048
  11. LEPONEX [Suspect]
     Active Substance: CLOZAPINE
     Dosage: 100 MG, QD
     Route: 048
     Dates: start: 201311
  12. DIAZEPAM. [Concomitant]
     Active Substance: DIAZEPAM
     Indication: PRODUCT USED FOR UNKNOWN INDICATION
     Dosage: 5 MG, PM

REACTIONS (22)
  - Carcinoembryonic antigen increased [Not Recovered/Not Resolved]
  - Depression [Recovering/Resolving]
  - Neuroleptic malignant syndrome [Unknown]
  - Cardiac disorder [Unknown]
  - Haemoglobin decreased [Not Recovered/Not Resolved]
  - Obsessive-compulsive disorder [Unknown]
  - Respiratory depression [Unknown]
  - Homocystinaemia [Recovering/Resolving]
  - Initial insomnia [Recovered/Resolved]
  - Sedation [Not Recovered/Not Resolved]
  - Dyspnoea [Unknown]
  - Drug ineffective [Recovering/Resolving]
  - Cardiovascular insufficiency [Recovering/Resolving]
  - Hyperhidrosis [Recovered/Resolved]
  - Type 2 diabetes mellitus [Not Recovered/Not Resolved]
  - B-cell lymphoma [Unknown]
  - Coagulopathy [Recovered/Resolved]
  - Paraesthesia [Unknown]
  - Parkinsonism [Unknown]
  - Hypersomnia [Unknown]
  - Rales [Unknown]
  - Fatigue [Recovering/Resolving]

NARRATIVE: CASE EVENT DATE: 2010
